FAERS Safety Report 16186242 (Version 2)
Quarter: 2019Q2

REPORT INFORMATION
  Report Type: Spontaneous
  Country: JP (occurrence: JP)
  Receive Date: 20190411
  Receipt Date: 20190426
  Transmission Date: 20190711
  Serious: Yes (Life-Threatening)
  Sender: FDA-Public Use
  Company Number: JP-SA-2019SA035885

PATIENT
  Age: 82 Year
  Sex: Female
  Weight: 44 kg

DRUGS (49)
  1. EMEND [Concomitant]
     Active Substance: APREPITANT
     Dosage: UNK
     Dates: start: 20180416, end: 20190131
  2. ELPLAT [Suspect]
     Active Substance: OXALIPLATIN
     Dosage: 100 MG, QD
     Route: 041
     Dates: start: 20180703, end: 20180703
  3. ELPLAT [Suspect]
     Active Substance: OXALIPLATIN
     Dosage: 100 MG, QD
     Route: 041
     Dates: start: 20180731, end: 20180731
  4. ELPLAT [Suspect]
     Active Substance: OXALIPLATIN
     Dosage: 100 MG, QD
     Route: 041
     Dates: start: 20181016, end: 20181016
  5. ELPLAT [Suspect]
     Active Substance: OXALIPLATIN
     Dosage: 100 MG, QD
     Route: 041
     Dates: start: 20181127, end: 20181127
  6. ELPLAT [Suspect]
     Active Substance: OXALIPLATIN
     Dosage: 100 MG, QD
     Route: 041
     Dates: start: 20181211, end: 20181211
  7. BEVACIZUMAB. [Suspect]
     Active Substance: BEVACIZUMAB
     Dosage: 250 MG, QD
     Route: 041
     Dates: start: 20181016, end: 20181016
  8. BEVACIZUMAB. [Suspect]
     Active Substance: BEVACIZUMAB
     Dosage: 250 MG, QD
     Route: 041
     Dates: start: 20181031, end: 20181031
  9. BEVACIZUMAB. [Suspect]
     Active Substance: BEVACIZUMAB
     Dosage: 250 MG, QD
     Route: 041
     Dates: start: 20190116, end: 20190116
  10. 5-FU [FLUOROURACIL] [Concomitant]
     Active Substance: FLUOROURACIL
     Dosage: UNK
     Route: 040
     Dates: start: 20190129, end: 20190129
  11. ALOXI [Concomitant]
     Active Substance: PALONOSETRON HYDROCHLORIDE
     Dosage: UNK
     Route: 065
     Dates: start: 20180416, end: 20190129
  12. ELPLAT [Suspect]
     Active Substance: OXALIPLATIN
     Dosage: 100 MG, QD
     Route: 041
     Dates: start: 20180523, end: 20180523
  13. BEVACIZUMAB. [Suspect]
     Active Substance: BEVACIZUMAB
     Indication: COLON CANCER
     Dosage: 250 MG, QD
     Route: 041
     Dates: start: 20180510, end: 20180510
  14. BEVACIZUMAB. [Suspect]
     Active Substance: BEVACIZUMAB
     Dosage: 250 MG, QD
     Route: 041
     Dates: start: 20180605, end: 20180605
  15. BEVACIZUMAB. [Suspect]
     Active Substance: BEVACIZUMAB
     Dosage: 250 MG, QD
     Route: 041
     Dates: start: 20181113, end: 20181113
  16. BEVACIZUMAB. [Suspect]
     Active Substance: BEVACIZUMAB
     Dosage: 250 MG, QD
     Route: 041
     Dates: start: 20181226, end: 20181226
  17. LEVOFOLINATE CALCIUM [Concomitant]
     Active Substance: LEVOLEUCOVORIN CALCIUM
     Dosage: UNK
     Dates: start: 20190129, end: 20190129
  18. ELPLAT [Suspect]
     Active Substance: OXALIPLATIN
     Dosage: 100 MG, QD
     Route: 041
     Dates: start: 20180510, end: 20180510
  19. ELPLAT [Suspect]
     Active Substance: OXALIPLATIN
     Dosage: 100 MG, QD
     Route: 041
     Dates: start: 20180918, end: 20180918
  20. ELPLAT [Suspect]
     Active Substance: OXALIPLATIN
     Dosage: 100 MG, QD
     Route: 041
     Dates: start: 20190116, end: 20190116
  21. BEVACIZUMAB. [Suspect]
     Active Substance: BEVACIZUMAB
     Dosage: 250 MG, QD
     Route: 041
     Dates: start: 20180523, end: 20180523
  22. DECADRON [Concomitant]
     Active Substance: DEXAMETHASONE
     Dosage: UNK
     Dates: start: 20190129, end: 20190129
  23. ELPLAT [Suspect]
     Active Substance: OXALIPLATIN
     Indication: COLON CANCER
     Dosage: 89.7 MG/M2, QD
     Route: 041
     Dates: start: 20180416, end: 20180416
  24. ELPLAT [Suspect]
     Active Substance: OXALIPLATIN
     Dosage: 100 MG, QD
     Route: 041
     Dates: start: 20181002, end: 20181002
  25. ELPLAT [Suspect]
     Active Substance: OXALIPLATIN
     Dosage: 100 MG, QD
     Route: 041
     Dates: start: 20181226, end: 20181226
  26. BEVACIZUMAB. [Suspect]
     Active Substance: BEVACIZUMAB
     Dosage: 250 MG, QD
     Route: 041
     Dates: start: 20180703, end: 20180703
  27. 5-FU [FLUOROURACIL] [Concomitant]
     Active Substance: FLUOROURACIL
     Dosage: UNK
     Route: 040
     Dates: start: 20180416, end: 20190130
  28. DECADRON [Concomitant]
     Active Substance: DEXAMETHASONE
     Dosage: UNK
     Dates: start: 20180416, end: 20180416
  29. ELPLAT [Suspect]
     Active Substance: OXALIPLATIN
     Dosage: 100 MG, QD
     Route: 041
     Dates: start: 20180619, end: 20180619
  30. ELPLAT [Suspect]
     Active Substance: OXALIPLATIN
     Dosage: 100 MG, QD
     Route: 041
     Dates: start: 20180904, end: 20180904
  31. ELPLAT [Suspect]
     Active Substance: OXALIPLATIN
     Dosage: 100 MG, QD
     Route: 041
     Dates: start: 20181113, end: 20181113
  32. ELPLAT [Suspect]
     Active Substance: OXALIPLATIN
     Dosage: 120 MG, QD
     Route: 042
  33. BEVACIZUMAB. [Suspect]
     Active Substance: BEVACIZUMAB
     Dosage: 250 MG, QD
     Route: 041
     Dates: start: 20180731, end: 20180731
  34. BEVACIZUMAB. [Suspect]
     Active Substance: BEVACIZUMAB
     Dosage: 250 MG, QD
     Route: 041
     Dates: start: 20180821, end: 20180821
  35. BEVACIZUMAB. [Suspect]
     Active Substance: BEVACIZUMAB
     Dosage: 250 MG, QD
     Route: 041
     Dates: start: 20180904, end: 20180904
  36. BEVACIZUMAB. [Suspect]
     Active Substance: BEVACIZUMAB
     Dosage: 250 MG, QD
     Route: 041
     Dates: start: 20190129, end: 20190129
  37. ELPLAT [Suspect]
     Active Substance: OXALIPLATIN
     Dosage: 100 MG, QD
     Route: 041
     Dates: start: 20180605, end: 20180605
  38. ELPLAT [Suspect]
     Active Substance: OXALIPLATIN
     Dosage: 100 MG, QD
     Route: 041
     Dates: start: 20190129, end: 20190129
  39. BEVACIZUMAB. [Suspect]
     Active Substance: BEVACIZUMAB
     Dosage: 250 MG, QD
     Route: 041
     Dates: start: 20180717, end: 20180717
  40. BEVACIZUMAB. [Suspect]
     Active Substance: BEVACIZUMAB
     Dosage: 250 MG, QD
     Route: 041
     Dates: start: 20181127, end: 20181127
  41. ELPLAT [Suspect]
     Active Substance: OXALIPLATIN
     Dosage: 100 MG, QD
     Route: 041
     Dates: start: 20180717, end: 20180717
  42. BEVACIZUMAB. [Suspect]
     Active Substance: BEVACIZUMAB
     Dosage: 250 MG, QD
     Route: 041
     Dates: start: 20180619, end: 20180619
  43. BEVACIZUMAB. [Suspect]
     Active Substance: BEVACIZUMAB
     Dosage: 250 MG, QD
     Route: 041
     Dates: start: 20180918, end: 20180918
  44. BEVACIZUMAB. [Suspect]
     Active Substance: BEVACIZUMAB
     Dosage: 250 MG, QD
     Route: 041
     Dates: start: 20181002, end: 20181002
  45. BEVACIZUMAB. [Suspect]
     Active Substance: BEVACIZUMAB
     Dosage: 250 MG, QD
     Route: 041
     Dates: start: 20181211, end: 20181211
  46. LEVOFOLINATE CALCIUM [Concomitant]
     Active Substance: LEVOLEUCOVORIN CALCIUM
     Dosage: UNK
     Dates: start: 20180416, end: 20180416
  47. LEVOFOLINATE CALCIUM [Concomitant]
     Active Substance: LEVOLEUCOVORIN CALCIUM
     Dosage: UNK
     Dates: start: 20190130, end: 20190130
  48. ELPLAT [Suspect]
     Active Substance: OXALIPLATIN
     Dosage: 100 MG, QD
     Route: 041
     Dates: start: 20180821, end: 20180821
  49. ELPLAT [Suspect]
     Active Substance: OXALIPLATIN
     Dosage: 100 MG, QD
     Route: 041
     Dates: start: 20181031, end: 20181031

REACTIONS (4)
  - Disseminated intravascular coagulation [Recovered/Resolved]
  - Haemolytic anaemia [Recovered/Resolved]
  - Cerebral haemorrhage [Recovering/Resolving]
  - White blood cell count decreased [Recovered/Resolved]

NARRATIVE: CASE EVENT DATE: 20190129
